FAERS Safety Report 8433336-8 (Version None)
Quarter: 2012Q2

REPORT INFORMATION
  Report Type: 
  Country: None (occurrence: None)
  Receive Date: 20120613
  Receipt Date: 20120606
  Transmission Date: 20120825
  Serious: Yes (Other)
  Sender: FDA-Public Use
  Company Number: US-PFIZER INC-2012136244

PATIENT
  Sex: Female
  Weight: 74.376 kg

DRUGS (1)
  1. CELEBREX [Suspect]
     Indication: KNEE ARTHROPLASTY
     Dosage: 100 MG, UNK
     Dates: start: 20120313

REACTIONS (1)
  - INCISION SITE HAEMORRHAGE [None]
